FAERS Safety Report 11777630 (Version 1)
Quarter: 2015Q4

REPORT INFORMATION
  Report Type: Spontaneous
  Country: US (occurrence: US)
  Receive Date: 20151125
  Receipt Date: 20151125
  Transmission Date: 20160304
  Serious: No
  Sender: FDA-Public Use
  Company Number: US-WARNER CHILCOTT, LLC-1044609

PATIENT
  Sex: Female

DRUGS (2)
  1. MINASTRIN 24 FE [Suspect]
     Active Substance: ETHINYL ESTRADIOL\NORETHINDRONE ACETATE
     Route: 048
  2. PLAN B [Suspect]
     Active Substance: LEVONORGESTREL
     Dates: start: 20150913

REACTIONS (2)
  - Drug interaction [Unknown]
  - Menstruation irregular [Not Recovered/Not Resolved]
